FAERS Safety Report 7921005-X (Version None)
Quarter: 2011Q4

REPORT INFORMATION
  Report Type: 
  Country: None (occurrence: None)
  Receive Date: 20111117
  Receipt Date: 20111105
  Transmission Date: 20120403
  Serious: Yes (Other)
  Sender: FDA-Public Use
  Company Number: US-BAYER-200943871NA

PATIENT
  Age: 27 Year
  Sex: Female
  Weight: 95.238 kg

DRUGS (23)
  1. TRIAMTERENE [Concomitant]
     Dosage: UNK
     Dates: start: 20071203
  2. ALLEGRA [Concomitant]
     Indication: MULTIPLE ALLERGIES
     Dosage: UNK
     Route: 048
     Dates: start: 20070101
  3. ELAVIL [Concomitant]
     Indication: DEPRESSION
     Dosage: UNK
     Dates: start: 20071214
  4. KLOR-CON [Concomitant]
     Indication: BLOOD POTASSIUM DECREASED
     Dosage: UNK
     Dates: start: 20090101
  5. YASMIN [Suspect]
     Dosage: UNK
     Dates: start: 20090701, end: 20091201
  6. DICLOFENAC SODIUM [Concomitant]
     Indication: BACK PAIN
     Dosage: UNK
     Dates: start: 20050101
  7. IMITREX [Concomitant]
     Indication: MIGRAINE
     Dosage: UNK
     Dates: start: 20070928
  8. DICLOFENAC SODIUM [Concomitant]
     Dosage: UNK
  9. CYMBALTA [Concomitant]
     Indication: DEPRESSION
     Dosage: UNK
     Dates: start: 20071213
  10. YAZ [Suspect]
     Dosage: UNK
     Dates: start: 20080101, end: 20100101
  11. SULFAMETHOXAZOLE [Concomitant]
     Dosage: UNK
     Dates: start: 20071108
  12. LAMICTAL [Concomitant]
     Indication: CONVULSION
     Dosage: UNK
     Dates: start: 20090101
  13. SYNTHROID [Concomitant]
     Indication: HYPOTHYROIDISM
     Dosage: UNK
     Dates: start: 20100101
  14. LORTAB [Concomitant]
     Indication: ABDOMINAL PAIN UPPER
     Dosage: UNK
     Dates: start: 20071121
  15. MIRAPEX [Concomitant]
     Dosage: UNK
     Dates: start: 20070912
  16. YAZ [Suspect]
     Dosage: UNK
     Dates: start: 20100101
  17. FEXOFENADINE [Concomitant]
     Dosage: UNK
     Dates: start: 20071203
  18. PAROXETINE HCL [Concomitant]
     Dosage: UNK
     Dates: start: 20070912
  19. HYDROCODONE BITARTRATE AND ACETAMINOPHEN [Concomitant]
     Dosage: UNK
     Dates: start: 20071229
  20. NEXIUM [Concomitant]
     Indication: GASTROOESOPHAGEAL REFLUX PROPHYLAXIS
     Dosage: UNK
     Dates: start: 20090101
  21. YASMIN [Suspect]
     Dosage: UNK UNK, QD
     Dates: start: 20070101, end: 20071201
  22. TRIAMTERENE AND HYDROCHLOROTHIAZIDE [Concomitant]
     Indication: SWELLING
     Dosage: UNK
     Dates: start: 20020101
  23. NORVASC [Concomitant]
     Indication: HYPERTENSION
     Dosage: UNK
     Dates: start: 20100101

REACTIONS (5)
  - ABDOMINAL PAIN UPPER [None]
  - ABDOMINAL PAIN [None]
  - CHOLECYSTITIS [None]
  - VAGINAL HAEMORRHAGE [None]
  - PAIN [None]
